FAERS Safety Report 15311298 (Version 2)
Quarter: 2018Q3

REPORT INFORMATION
  Report Type: Spontaneous
  Country: US (occurrence: US)
  Receive Date: 20180823
  Receipt Date: 20180824
  Transmission Date: 20181010
  Serious: Yes (Other)
  Sender: FDA-Public Use
  Company Number: US-PFIZER INC-2018338681

PATIENT
  Age: 57 Year
  Sex: Female

DRUGS (1)
  1. ADVIL [Suspect]
     Active Substance: IBUPROFEN
     Indication: PAIN
     Dosage: 600 MG, 3X/DAY

REACTIONS (3)
  - Incorrect dose administered [Unknown]
  - Internal haemorrhage [Unknown]
  - Occult blood positive [Unknown]
